FAERS Safety Report 14230401 (Version 1)
Quarter: 2017Q4

REPORT INFORMATION
  Report Type: Spontaneous
  Country: DE (occurrence: DE)
  Receive Date: 20171128
  Receipt Date: 20171128
  Transmission Date: 20180321
  Serious: Yes (Death, Hospitalization)
  Sender: FDA-Public Use
  Company Number: DE-MYLANLABS-2017M1074118

PATIENT
  Age: 22 Year
  Sex: Female

DRUGS (2)
  1. QUETIAPINE. [Suspect]
     Active Substance: QUETIAPINE
     Indication: SCHIZOPHRENIA
     Dosage: INITIAL DOSAGE WAS UNKNOWN; HOWEVER, AT THE TIME OF DISCHARGE RECEIVING 600MG DAILY
     Route: 065
  2. LORAZEPAM. [Concomitant]
     Active Substance: LORAZEPAM
     Indication: SCHIZOPHRENIA
     Dosage: 2MG A DAY
     Route: 065

REACTIONS (11)
  - Tonsillitis [Unknown]
  - Agranulocytosis [Fatal]
  - Cardiopulmonary failure [Fatal]
  - Sepsis [Fatal]
  - Hypoxia [Unknown]
  - Fall [Unknown]
  - Multiple organ dysfunction syndrome [Fatal]
  - Pneumonia fungal [Fatal]
  - Metabolic acidosis [Unknown]
  - Aphasia [Unknown]
  - Pharyngitis [Unknown]
